FAERS Safety Report 8036022-1 (Version None)
Quarter: 2012Q1

REPORT INFORMATION
  Report Type: 
  Country: None (occurrence: None)
  Receive Date: 20120111
  Receipt Date: 20120102
  Transmission Date: 20120608
  Serious: Yes (Death, Hospitalization, Other)
  Sender: FDA-Public Use
  Company Number: TW-ASTELLAS-2012JP000139

PATIENT
  Age: 52 Year
  Sex: Male

DRUGS (2)
  1. TACROLIMUS [Suspect]
     Indication: IMMUNOSUPPRESSANT DRUG THERAPY
     Dosage: 8 MG, UNKNOWN/D
     Route: 065
  2. TACROLIMUS [Suspect]
     Dosage: 1 MG, UNKNOWN/D
     Route: 065
     Dates: end: 20080425

REACTIONS (5)
  - LIVER ABSCESS [None]
  - SEPSIS [None]
  - NEUROTOXICITY [None]
  - INFECTION [None]
  - MULTI-ORGAN FAILURE [None]
